FAERS Safety Report 9596766 (Version 7)
Quarter: 2013Q4

REPORT INFORMATION
  Report Type: Report from Study
  Country: FR (occurrence: FR)
  Receive Date: 20131004
  Receipt Date: 20131224
  Transmission Date: 20140711
  Serious: Yes (Hospitalization)
  Sender: FDA-Public Use
  Company Number: FR-PFIZER INC-2013279048

PATIENT
  Age: 61 Year
  Sex: Male
  Weight: 53 kg

DRUGS (4)
  1. CRIZOTINIB [Suspect]
     Indication: ANAPLASTIC THYROID CANCER
     Dosage: 250 MG, UNK
     Route: 048
     Dates: start: 20130919
  2. LEVOTHYROX [Concomitant]
     Indication: HYPOTHYROIDISM
     Dosage: 100 UG, 1X/DAY 1 IN THE MORNING
     Route: 048
  3. XALATAN [Concomitant]
     Indication: GLAUCOMA
     Dosage: ONE DROP DAILY IN THE EVENING IN BOTH EYES
     Route: 047
  4. ZOLPIDEM [Concomitant]
     Indication: INSOMNIA
     Dosage: 10 MG, UNK
     Route: 048

REACTIONS (1)
  - Acute respiratory distress syndrome [Not Recovered/Not Resolved]
